FAERS Safety Report 9373271 (Version 1)
Quarter: 2013Q3

REPORT INFORMATION
  Report Type: Spontaneous
  Country: FR (occurrence: FR)
  Receive Date: 20130627
  Receipt Date: 20130702
  Transmission Date: 20140515
  Serious: Yes (Hospitalization, Other)
  Sender: FDA-Public Use
  Company Number: FR-ABBOTT-13P-056-1108712-00

PATIENT
  Age: 30 Year
  Sex: Female

DRUGS (15)
  1. NORVIR [Suspect]
     Indication: HIV INFECTION
     Route: 048
     Dates: start: 201305
  2. REYATAZ [Suspect]
     Indication: HIV INFECTION
     Route: 048
     Dates: start: 201305
  3. COLCHIMAX (COLCHICINE\DICYCLOMINE HYDROCHLORIDE) [Interacting]
     Indication: GOUT
     Dosage: 1 G DAILY
     Route: 048
     Dates: start: 20130601, end: 20130601
  4. COLCHIMAX (COLCHICINE\DICYCLOMINE HYDROCHLORIDE) [Interacting]
     Dosage: 3 G DAILY
     Route: 048
     Dates: start: 20130602, end: 20130602
  5. COLCHIMAX (COLCHICINE\DICYCLOMINE HYDROCHLORIDE) [Interacting]
     Dosage: 2 G DAILY
     Route: 048
     Dates: start: 20130603, end: 20130603
  6. COLCHIMAX (COLCHICINE\DICYCLOMINE HYDROCHLORIDE) [Interacting]
     Dosage: 1 G DAILY
     Route: 048
     Dates: start: 20130606, end: 20130606
  7. COLCHIMAX (COLCHICINE\DICYCLOMINE HYDROCHLORIDE) [Interacting]
     Dosage: 3 G DAILY
     Route: 048
     Dates: start: 20130607, end: 20130607
  8. COLCHIMAX [Interacting]
     Dosage: 2 G DAILY
     Route: 048
     Dates: start: 20130608, end: 20130608
  9. SULFAMETHOXAZOLE [Suspect]
     Indication: PRODUCT USED FOR UNKNOWN INDICATION
  10. TRIMETHOPRIM [Suspect]
     Indication: PRODUCT USED FOR UNKNOWN INDICATION
  11. ZYMAD [Concomitant]
     Indication: PRODUCT USED FOR UNKNOWN INDICATION
  12. ESOMEPRAZOLE (INEXIUM) [Concomitant]
     Indication: PRODUCT USED FOR UNKNOWN INDICATION
  13. POTASSIUM (DIFFUK) [Concomitant]
     Indication: PRODUCT USED FOR UNKNOWN INDICATION
  14. FLUCONAZOLE [Concomitant]
     Indication: PRODUCT USED FOR UNKNOWN INDICATION
  15. TRUVADA [Concomitant]
     Indication: PRODUCT USED FOR UNKNOWN INDICATION
     Dates: start: 201305

REACTIONS (9)
  - Drug interaction [Unknown]
  - Vomiting [Unknown]
  - Gout [Unknown]
  - Dehydration [Unknown]
  - Leukopenia [Unknown]
  - Neutropenia [Unknown]
  - Platelet count decreased [Unknown]
  - General physical health deterioration [Unknown]
  - Dyspnoea [Unknown]
